FAERS Safety Report 23964731 (Version 14)
Quarter: 2025Q1

REPORT INFORMATION
  Report Type: Spontaneous
  Country: CA (occurrence: CA)
  Receive Date: 20240612
  Receipt Date: 20250301
  Transmission Date: 20250409
  Serious: Yes (Hospitalization, Other)
  Sender: CELLTRION
  Company Number: CA-PFIZER INC-202400035226

PATIENT

DRUGS (14)
  1. INFLECTRA [Suspect]
     Active Substance: INFLIXIMAB-DYYB
     Indication: Crohn^s disease
     Route: 042
     Dates: start: 20231003, end: 20231003
  2. INFLECTRA [Suspect]
     Active Substance: INFLIXIMAB-DYYB
     Route: 042
     Dates: start: 20231016, end: 20240112
  3. INFLECTRA [Suspect]
     Active Substance: INFLIXIMAB-DYYB
     Route: 042
     Dates: start: 20240213
  4. INFLECTRA [Suspect]
     Active Substance: INFLIXIMAB-DYYB
     Route: 042
     Dates: start: 20240311
  5. INFLECTRA [Suspect]
     Active Substance: INFLIXIMAB-DYYB
     Route: 042
     Dates: start: 20240408
  6. INFLECTRA [Suspect]
     Active Substance: INFLIXIMAB-DYYB
     Route: 042
     Dates: start: 20240506
  7. INFLECTRA [Suspect]
     Active Substance: INFLIXIMAB-DYYB
     Route: 042
     Dates: start: 20240605
  8. INFLECTRA [Suspect]
     Active Substance: INFLIXIMAB-DYYB
     Route: 042
     Dates: start: 20240702
  9. INFLECTRA [Suspect]
     Active Substance: INFLIXIMAB-DYYB
     Route: 042
     Dates: start: 20240730
  10. INFLECTRA [Suspect]
     Active Substance: INFLIXIMAB-DYYB
     Route: 042
     Dates: start: 20240826
  11. INFLECTRA [Suspect]
     Active Substance: INFLIXIMAB-DYYB
     Route: 042
     Dates: start: 20241008, end: 20241008
  12. INFLECTRA [Suspect]
     Active Substance: INFLIXIMAB-DYYB
     Route: 042
     Dates: start: 20241118
  13. INFLECTRA [Suspect]
     Active Substance: INFLIXIMAB-DYYB
     Route: 042
     Dates: start: 20250113
  14. PREDNISONE [Concomitant]
     Active Substance: PREDNISONE
     Dates: start: 202310

REACTIONS (26)
  - Pancreatitis [Recovering/Resolving]
  - Swelling of eyelid [Not Recovered/Not Resolved]
  - Pruritus [Recovered/Resolved]
  - Eyelid margin crusting [Not Recovered/Not Resolved]
  - Ocular hyperaemia [Not Recovered/Not Resolved]
  - Uveitis [Recovered/Resolved]
  - Anal fistula [Not Recovered/Not Resolved]
  - Fistula discharge [Not Recovered/Not Resolved]
  - Anal pruritus [Not Recovered/Not Resolved]
  - Fistula [Recovered/Resolved]
  - Influenza [Recovering/Resolving]
  - Anal fissure [Recovered/Resolved]
  - Hypersensitivity [Not Recovered/Not Resolved]
  - Eye swelling [Recovering/Resolving]
  - Acne [Unknown]
  - Skin plaque [Recovering/Resolving]
  - Swollen tongue [Recovered/Resolved]
  - Arthropod bite [Unknown]
  - Diarrhoea [Unknown]
  - Abdominal pain upper [Not Recovered/Not Resolved]
  - Erythema [Not Recovered/Not Resolved]
  - Cholelithiasis [Recovering/Resolving]
  - Eating disorder [Unknown]
  - Off label use [Unknown]
  - Off label use [Unknown]
  - Intentional product use issue [Unknown]

NARRATIVE: CASE EVENT DATE: 20240101
